FAERS Safety Report 13021249 (Version 1)
Quarter: 2016Q4

REPORT INFORMATION
  Report Type: Report from Study
  Country: US (occurrence: US)
  Receive Date: 20161213
  Receipt Date: 20161213
  Transmission Date: 20170207
  Serious: Yes (Other)
  Sender: FDA-Public Use
  Company Number: US-ROCHE-1675175

PATIENT

DRUGS (4)
  1. GEMCITABINE [Suspect]
     Active Substance: GEMCITABINE\GEMCITABINE HYDROCHLORIDE
     Indication: SARCOMA
     Dosage: DAY 1 AND DAY 8
     Route: 065
  2. DOCETAXEL. [Suspect]
     Active Substance: DOCETAXEL
     Indication: SARCOMA
     Dosage: DAY 8
     Route: 065
  3. DEXAMETHASONE. [Concomitant]
     Active Substance: DEXAMETHASONE
     Route: 048
  4. BEVACIZUMAB [Suspect]
     Active Substance: BEVACIZUMAB
     Indication: SARCOMA
     Dosage: DAY 1
     Route: 065

REACTIONS (21)
  - Aspartate aminotransferase increased [Unknown]
  - Fatigue [Unknown]
  - Sinusitis [Unknown]
  - Dacryostenosis acquired [Unknown]
  - Hypertension [Unknown]
  - Hypoalbuminaemia [Unknown]
  - Thrombocytopenia [Unknown]
  - Febrile neutropenia [Unknown]
  - Oedema [Unknown]
  - Anaemia [Unknown]
  - Thrombosis [Unknown]
  - Nasal septum perforation [Unknown]
  - Neutropenia [Unknown]
  - Blood alkaline phosphatase increased [Unknown]
  - Hypophosphataemia [Unknown]
  - Epistaxis [Unknown]
  - Nausea [Unknown]
  - Alopecia [Unknown]
  - Mucosal inflammation [Unknown]
  - Infection [Unknown]
  - Alanine aminotransferase increased [Unknown]
